FAERS Safety Report 20491437 (Version 1)
Quarter: 2022Q1

REPORT INFORMATION
  Report Type: Other
  Country: US (occurrence: None)
  Receive Date: 20220218
  Receipt Date: 20220218
  Transmission Date: 20220423
  Serious: Yes (Death)
  Sender: FDA-Public Use
  Company Number: US-ROCHE-3026575

PATIENT
  Sex: Female

DRUGS (1)
  1. OCREVUS [Suspect]
     Active Substance: OCRELIZUMAB
     Indication: Primary progressive multiple sclerosis
     Dosage: DATE OF TREATMENT: 19/JAN/20218, 23/JUL/2018, 28/JUN/2019, 07/JAN/2020, 07/JUL/2020, 24/AUG/2021
     Route: 042
     Dates: start: 20211024

REACTIONS (1)
  - Death [Fatal]
